FAERS Safety Report 21134521 (Version 1)
Quarter: 2022Q3

REPORT INFORMATION
  Report Type: Report from Study
  Country: JP (occurrence: JP)
  Receive Date: 20220726
  Receipt Date: 20220726
  Transmission Date: 20221026
  Serious: Yes (Death)
  Sender: FDA-Public Use
  Company Number: JP-JNJFOC-A-CH2018-180857

PATIENT
  Age: 64 Year
  Sex: Female

DRUGS (8)
  1. OPSUMIT [Suspect]
     Active Substance: MACITENTAN
     Indication: Pulmonary arterial hypertension
     Dosage: IN THE MORNING
     Route: 048
     Dates: start: 20150717
  2. EPOPROSTENOL [Suspect]
     Active Substance: EPOPROSTENOL
     Indication: Pulmonary arterial hypertension
     Dosage: 28NG/KG/MIN
     Route: 042
     Dates: start: 20120625
  3. REVATIO [Concomitant]
     Active Substance: SILDENAFIL CITRATE
     Indication: Pulmonary arterial hypertension
     Route: 048
     Dates: start: 20120521
  4. OXYGEN [Concomitant]
     Active Substance: OXYGEN
     Route: 055
  5. AZOSEMIDE [Concomitant]
     Active Substance: AZOSEMIDE
     Indication: Pulmonary arterial hypertension
     Route: 048
     Dates: start: 20120514
  6. MICARDIS [Concomitant]
     Active Substance: TELMISARTAN
     Indication: Hypertension
     Route: 048
     Dates: start: 20120514
  7. MICARDIS [Concomitant]
     Active Substance: TELMISARTAN
     Route: 048
  8. AMLODIPINE BESYLATE [Concomitant]
     Active Substance: AMLODIPINE BESYLATE
     Indication: Hypertension
     Route: 048
     Dates: start: 20151218

REACTIONS (1)
  - Death [Fatal]
